FAERS Safety Report 22394460 (Version 1)
Quarter: 2023Q2

REPORT INFORMATION
  Report Type: Spontaneous
  Country: US (occurrence: None)
  Receive Date: 20230531
  Receipt Date: 20230531
  Transmission Date: 20230721
  Serious: No
  Sender: FDA-Public Use
  Company Number: None

PATIENT
  Age: 77 Year
  Sex: Male

DRUGS (1)
  1. IMATINIB [Suspect]
     Active Substance: IMATINIB
     Indication: Gastric cancer
     Dosage: FREQUENCY : DAILY;?
     Route: 048
     Dates: start: 20230524

REACTIONS (6)
  - Pain in extremity [None]
  - Swollen tongue [None]
  - Gingival swelling [None]
  - Tongue erythema [None]
  - Gingival pain [None]
  - Gingival erythema [None]

NARRATIVE: CASE EVENT DATE: 20230527
